FAERS Safety Report 8432432-9 (Version None)
Quarter: 2012Q2

REPORT INFORMATION
  Report Type: 
  Country: None (occurrence: None)
  Receive Date: 20120613
  Receipt Date: 20120612
  Transmission Date: 20120825
  Serious: Yes (Other)
  Sender: FDA-Public Use
  Company Number: US-ELI_LILLY_AND_COMPANY-US201205001226

PATIENT
  Age: 55 Year
  Sex: Male

DRUGS (1)
  1. EFFIENT [Suspect]
     Dosage: UNK, UNKNOWN

REACTIONS (4)
  - HAEMORRHAGE INTRACRANIAL [None]
  - THROMBOSIS [None]
  - CONFUSIONAL STATE [None]
  - FATIGUE [None]
